FAERS Safety Report 8508206-7 (Version None)
Quarter: 2012Q2

REPORT INFORMATION
  Report Type: 
  Country: None (occurrence: None)
  Receive Date: 20120405
  Receipt Date: 20080724
  Transmission Date: 20120825
  Serious: Yes (Disabling, Other)
  Sender: FDA-Public Use
  Company Number: PHEH2008US04588

PATIENT
  Age: 56 Year
  Sex: Female
  Weight: 57.1 kg

DRUGS (12)
  1. KLONOPIN [Concomitant]
  2. ZYFLO [Concomitant]
  3. ZYRTEC [Concomitant]
  4. RINOCORT (BECLOMETASONE DIPROPIONATE) [Concomitant]
  5. CALCIUM CITRATE [Concomitant]
  6. AMITIZA [Concomitant]
  7. ADVAIR HFA [Concomitant]
  8. RECLAST [Suspect]
     Indication: OSTEOPOROSIS
     Dosage: 5 MG IV, INFUSION
     Dates: start: 20080417
  9. SINGULAIR [Concomitant]
  10. SPIRIVA [Concomitant]
  11. VAGIFEM [Concomitant]
  12. PROVIGIL [Concomitant]

REACTIONS (9)
  - SOMNOLENCE [None]
  - NAUSEA [None]
  - RENAL FAILURE [None]
  - FATIGUE [None]
  - PYREXIA [None]
  - PAIN [None]
  - INFLUENZA LIKE ILLNESS [None]
  - MALAISE [None]
  - ARTHRALGIA [None]
